FAERS Safety Report 10174600 (Version 1)
Quarter: 2014Q2

REPORT INFORMATION
  Report Type: Spontaneous
  Country: US (occurrence: None)
  Receive Date: 20140416
  Receipt Date: 20140416
  Transmission Date: 20141212
  Serious: No
  Sender: FDA-Public Use
  Company Number: 163-POMAL-14012871

PATIENT
  Age: 55 Year
  Sex: Female
  Weight: 87.09 kg

DRUGS (5)
  1. POMALYST [Suspect]
     Indication: PLASMA CELL MYELOMA
     Dosage: 21 IN 21 D
     Route: 048
     Dates: start: 20131101
  2. DEXAMETHASONE (DEXAMETHASONE) [Concomitant]
  3. CALCIUM (CALCIUM) [Concomitant]
  4. ASPIRIN (ACETYLSALICYLIC ACID) [Concomitant]
  5. VITAMIN D (ERGOCALCIFEROL) [Concomitant]

REACTIONS (1)
  - Pharyngitis [None]
